FAERS Safety Report 14112301 (Version 7)
Quarter: 2018Q1

REPORT INFORMATION
  Report Type: Spontaneous
  Country: US (occurrence: US)
  Receive Date: 20171020
  Receipt Date: 20180316
  Transmission Date: 20180508
  Serious: Yes (Hospitalization, Other)
  Sender: FDA-Public Use
  Company Number: US-ACTELION-A-NJ2017-161271

PATIENT
  Age: 66 Year
  Sex: Female
  Weight: 74.97 kg

DRUGS (20)
  1. UPTRAVI [Suspect]
     Active Substance: SELEXIPAG
     Dosage: 800 MG, UNK
     Route: 048
  2. FLUTICASONE. [Concomitant]
     Active Substance: FLUTICASONE
  3. SPIRIVA [Concomitant]
     Active Substance: TIOTROPIUM BROMIDE MONOHYDRATE
     Indication: PULMONARY HYPERTENSION
  4. AMBRISENTAN [Suspect]
     Active Substance: AMBRISENTAN
     Indication: SCLERODERMA
  5. UPTRAVI [Suspect]
     Active Substance: SELEXIPAG
     Dosage: 200 MCG, UNK
     Route: 048
  6. LEVOTHYROXINE. [Concomitant]
     Active Substance: LEVOTHYROXINE
  7. AMLODIPINE [Concomitant]
     Active Substance: AMLODIPINE BESYLATE
  8. ALPRAZOLAM. [Concomitant]
     Active Substance: ALPRAZOLAM
  9. METOPROLOL. [Concomitant]
     Active Substance: METOPROLOL
  10. ALBUTEROL. [Concomitant]
     Active Substance: ALBUTEROL
  11. FLOVENT [Concomitant]
     Active Substance: FLUTICASONE PROPIONATE
  12. AMBRISENTAN [Suspect]
     Active Substance: AMBRISENTAN
     Indication: PULMONARY HYPERTENSION
     Dosage: 10 MG, QD
     Route: 065
     Dates: start: 20160414
  13. ASPIRIN. [Concomitant]
     Active Substance: ASPIRIN
  14. POTASSIUM CHLORIDE. [Concomitant]
     Active Substance: POTASSIUM CHLORIDE
  15. OMEPRAZOLE. [Concomitant]
     Active Substance: OMEPRAZOLE
  16. FUROSEMIDE. [Concomitant]
     Active Substance: FUROSEMIDE
  17. SPIRIVA [Concomitant]
     Active Substance: TIOTROPIUM BROMIDE MONOHYDRATE
     Indication: SCLERODERMA
  18. UPTRAVI [Suspect]
     Active Substance: SELEXIPAG
     Indication: PULMONARY HYPERTENSION
     Dosage: 1600 MCG, BID
     Route: 048
  19. ADCIRCA [Concomitant]
     Active Substance: TADALAFIL
  20. TORSEMIDE. [Concomitant]
     Active Substance: TORSEMIDE

REACTIONS (21)
  - Oedema [Unknown]
  - Cough [Recovered/Resolved]
  - Presyncope [Unknown]
  - Migraine [Recovered/Resolved]
  - Headache [Unknown]
  - Drug dose omission [Unknown]
  - Diarrhoea [Recovered/Resolved]
  - Treatment noncompliance [Recovered/Resolved]
  - Viral infection [Unknown]
  - Oedema peripheral [Unknown]
  - Depression [Unknown]
  - Pyrexia [Recovered/Resolved]
  - Pulmonary hypertension [Unknown]
  - Dyspnoea [Recovered/Resolved]
  - Chills [Recovered/Resolved]
  - Bacterial infection [Unknown]
  - Dehydration [Recovered/Resolved]
  - Condition aggravated [Unknown]
  - Gastroenteritis viral [Unknown]
  - Decreased appetite [Unknown]
  - Fluid retention [Unknown]
